FAERS Safety Report 5267208-7 (Version None)
Quarter: 2007Q1

REPORT INFORMATION
  Report Type: 
  Country: None (occurrence: None)
  Receive Date: 20070316
  Receipt Date: 20070316
  Transmission Date: 20070707
  Serious: Yes (Other)
  Sender: FDA-Public Use
  Company Number: US-GLAXOSMITHKLINE-A0643322A

PATIENT
  Age: 36 Year
  Sex: Female

DRUGS (1)
  1. COMMIT [Suspect]
     Dosage: 4MG CUMULATIVE DOSE
     Dates: start: 20070101

REACTIONS (4)
  - APHASIA [None]
  - DYSPHAGIA [None]
  - PHARYNGOLARYNGEAL PAIN [None]
  - RETCHING [None]
